FAERS Safety Report 8549845-7 (Version None)
Quarter: 2012Q3

REPORT INFORMATION
  Report Type: 
  Country: None (occurrence: None)
  Receive Date: 20120718
  Receipt Date: 20120709
  Transmission Date: 20120928
  Serious: Yes (Other)
  Sender: FDA-Public Use
  Company Number: 2010004934

PATIENT
  Age: 70 Year
  Sex: Female

DRUGS (14)
  1. MAG-OX (MAGNESIUM OXYDE) [Concomitant]
  2. XANAX [Suspect]
     Indication: PRODUCT USED FOR UNKNOWN INDICATION
     Dosage: 0.25 MG, TID/PRN, ORAL
     Route: 048
     Dates: start: 20120306
  3. BACITRACIN [Concomitant]
  4. MARY MAGIC MOUTH WASH (MOUTHWASH) [Concomitant]
  5. TENORMIN [Concomitant]
  6. MICRO-K [Concomitant]
  7. CELEXA [Concomitant]
  8. AQUAPHOR (XIPAMIDE) [Concomitant]
  9. COMPAZINE [Concomitant]
  10. MACRODANTIN [Concomitant]
  11. PRILOSEC [Concomitant]
  12. BOOST (BIOTIN, CARBOHYDRATES NOS, FATS NOS, MINERALS NOS, POTASSIUM, P [Concomitant]
  13. TARCEVA [Suspect]
     Indication: LUNG CARCINOMA CELL TYPE UNSPECIFIED STAGE 0
     Dosage: 100 MG, UID/QD, ORAL
     Route: 048
     Dates: start: 20101103
  14. VENTOLIN HFA (SALBUTAMOL SULFATE) [Concomitant]

REACTIONS (6)
  - SOMNOLENCE [None]
  - STOMATITIS [None]
  - GLOMERULAR FILTRATION RATE DECREASED [None]
  - IRON DEFICIENCY ANAEMIA [None]
  - DIARRHOEA [None]
  - INCORRECT DOSE ADMINISTERED [None]
